FAERS Safety Report 5121095-6 (Version None)
Quarter: 2006Q4

REPORT INFORMATION
  Report Type: 
  Country: None (occurrence: None)
  Receive Date: 20061002
  Receipt Date: 20060912
  Transmission Date: 20070319
  Serious: Yes (Other)
  Sender: FDA-Public Use
  Company Number: US200608002062

PATIENT
  Age: 84 Year
  Sex: Female

DRUGS (4)
  1. CYMBALTA [Suspect]
     Indication: NEURALGIA
     Dosage: 30 MG
     Dates: start: 20060720, end: 20060809
  2. QUESTRAN [Concomitant]
  3. PRILOSEC [Concomitant]
  4. ACETAMINOPHEN [Concomitant]

REACTIONS (7)
  - GAIT DISTURBANCE [None]
  - HYPERHIDROSIS [None]
  - LEUKOCYTOCLASTIC VASCULITIS [None]
  - NAUSEA [None]
  - NEUTROPHIL COUNT INCREASED [None]
  - PHARMACEUTICAL PRODUCT COMPLAINT [None]
  - POLYARTERITIS NODOSA [None]
